FAERS Safety Report 24727373 (Version 1)
Quarter: 2024Q4

REPORT INFORMATION
  Report Type: Spontaneous
  Country: US (occurrence: US)
  Receive Date: 20241212
  Receipt Date: 20241212
  Transmission Date: 20250115
  Serious: Yes (Other)
  Sender: ELI LILLY AND COMPANY
  Company Number: US-ELI_LILLY_AND_COMPANY-US202412005569

PATIENT
  Age: 12 Year
  Sex: Male

DRUGS (2)
  1. SELPERCATINIB [Suspect]
     Active Substance: SELPERCATINIB
     Indication: Papillary thyroid cancer
     Dosage: 120 MG, BID
     Route: 065
  2. SELPERCATINIB [Suspect]
     Active Substance: SELPERCATINIB
     Dosage: 80 MG, BID
     Route: 065

REACTIONS (4)
  - Pneumonitis [Unknown]
  - Tumour lysis syndrome [Unknown]
  - Hyperphosphataemia [Unknown]
  - Tri-iodothyronine decreased [Unknown]
